FAERS Safety Report 20044610 (Version 2)
Quarter: 2021Q4

REPORT INFORMATION
  Report Type: Spontaneous
  Country: AU (occurrence: AU)
  Receive Date: 20211108
  Receipt Date: 20211118
  Transmission Date: 20220303
  Serious: Yes (Hospitalization, Other)
  Sender: FDA-Public Use
  Company Number: AU-MYLANLABS-2021M1080002

PATIENT
  Sex: Female

DRUGS (15)
  1. CLOZARIL [Suspect]
     Active Substance: CLOZAPINE
     Indication: Schizophrenia
     Dosage: 325 MILLIGRAM, QD
     Route: 048
     Dates: start: 20200624, end: 202110
  2. AMISULPRIDE [Concomitant]
     Active Substance: AMISULPRIDE
     Dosage: 1400 MILLIGRAM, QD
  3. ASPIRIN [Concomitant]
     Active Substance: ASPIRIN
     Dosage: 100 MILLIGRAM, AM
  4. ATORVASTATIN [Concomitant]
     Active Substance: ATORVASTATIN
     Dosage: 80 MILLIGRAM, AM
  5. PANTOPRAZOLE [Concomitant]
     Active Substance: PANTOPRAZOLE
     Dosage: 20 MILLIGRAM, AM
  6. ARIPIPRAZOLE [Concomitant]
     Active Substance: ARIPIPRAZOLE
     Dosage: 400 MILLIGRAM, MONTHLY
  7. GAVISCON                           /00237601/ [Concomitant]
     Dosage: UNK, PRN
  8. LACTULOSE [Concomitant]
     Active Substance: LACTULOSE
     Dosage: UNK, PRN
  9. MOVICOL                            /01749801/ [Concomitant]
     Dosage: UNK, PRN
  10. MYLANTA                            /00036701/ [Concomitant]
     Dosage: UNK, PRN
  11. NICOTINE [Concomitant]
     Active Substance: NICOTINE
     Dosage: UNK, PRN
  12. OLANZAPINE [Concomitant]
     Active Substance: OLANZAPINE
     Dosage: UNK, PRN
  13. ACETAMINOPHEN [Concomitant]
     Active Substance: ACETAMINOPHEN
     Dosage: UNK, PRN
  14. POLYTEARS [Concomitant]
     Dosage: UNK, PRN
  15. ALBUTEROL [Concomitant]
     Active Substance: ALBUTEROL
     Dosage: UNK, PRN

REACTIONS (6)
  - Left ventricular dysfunction [Unknown]
  - Ejection fraction decreased [Unknown]
  - Hypokinesia [Unknown]
  - Schizophrenia [Unknown]
  - Left ventricular hypertrophy [Unknown]
  - Cardiomyopathy [Unknown]
